FAERS Safety Report 15059165 (Version 1)
Quarter: 2018Q2

REPORT INFORMATION
  Report Type: Report from Study
  Country: FR (occurrence: FR)
  Receive Date: 20180625
  Receipt Date: 20180625
  Transmission Date: 20180711
  Serious: Yes (Death, Other)
  Sender: FDA-Public Use
  Company Number: FR-PFIZER INC-2018251496

PATIENT
  Age: 138 Month
  Sex: Male

DRUGS (1)
  1. SOMATROPIN. [Suspect]
     Active Substance: SOMATROPIN
     Indication: SMALL FOR DATES BABY
     Dosage: UNK, DAILY (HIGH GH DOSES) (MEAN GH DOSE 60 UG/KG/D)

REACTIONS (1)
  - Osteosarcoma [Fatal]
